FAERS Safety Report 11774767 (Version 1)
Quarter: 2015Q4

REPORT INFORMATION
  Report Type: Spontaneous
  Country: US (occurrence: US)
  Receive Date: 20151124
  Receipt Date: 20151124
  Transmission Date: 20160304
  Serious: No
  Sender: FDA-Public Use
  Company Number: US-BAYER-2015-474949

PATIENT
  Age: 12 Year
  Sex: Female
  Weight: 89.34 kg

DRUGS (1)
  1. CHILDREN CLARITIN ALLERGY [Suspect]
     Active Substance: LORATADINE

REACTIONS (1)
  - Expired product administered [None]

NARRATIVE: CASE EVENT DATE: 20151122
